FAERS Safety Report 9596173 (Version 2)
Quarter: 2013Q4

REPORT INFORMATION
  Report Type: Report from Study
  Country: CA (occurrence: CA)
  Receive Date: 20131004
  Receipt Date: 20131114
  Transmission Date: 20140711
  Serious: Yes (Other)
  Sender: FDA-Public Use
  Company Number: CA-JNJFOC-20131000580

PATIENT
  Age: 52 Year
  Sex: Female
  Weight: 80 kg

DRUGS (13)
  1. REMICADE [Suspect]
     Indication: RHEUMATOID ARTHRITIS
     Dosage: 99TH INFUSION
     Route: 042
     Dates: start: 20130927
  2. REMICADE [Suspect]
     Indication: RHEUMATOID ARTHRITIS
     Dosage: NINETY EIGHTH INFUSION
     Route: 042
     Dates: start: 20130815
  3. REMICADE [Suspect]
     Indication: RHEUMATOID ARTHRITIS
     Route: 042
     Dates: start: 20020904
  4. ANTIHISTAMINES [Suspect]
     Indication: PRODUCT USED FOR UNKNOWN INDICATION
     Route: 065
  5. CAFFEINE [Suspect]
     Indication: PRODUCT USED FOR UNKNOWN INDICATION
     Route: 065
  6. LEFLUNOMIDE [Concomitant]
     Route: 065
  7. FUROSEMIDE [Concomitant]
     Route: 065
  8. METOPROLOL [Concomitant]
     Route: 065
  9. ASA [Concomitant]
     Route: 065
  10. TYLENOL [Concomitant]
     Route: 065
  11. MISOPROSTOL [Concomitant]
     Route: 065
  12. DICLOFENAC [Concomitant]
     Route: 065
  13. NAPROXEN [Concomitant]
     Dosage: P.R.N
     Route: 065

REACTIONS (3)
  - Musculoskeletal chest pain [Not Recovered/Not Resolved]
  - Dyspnoea [Not Recovered/Not Resolved]
  - Cardiac flutter [Not Recovered/Not Resolved]
